FAERS Safety Report 7966305-2 (Version None)
Quarter: 2011Q4

REPORT INFORMATION
  Report Type: 
  Country: None (occurrence: None)
  Receive Date: 20111208
  Receipt Date: 20111123
  Transmission Date: 20120403
  Serious: Yes (Death, Other)
  Sender: FDA-Public Use
  Company Number: PK-ASTELLAS-2011US008231

PATIENT
  Sex: Male
  Weight: 71 kg

DRUGS (4)
  1. LEVOSULPIRIDE [Concomitant]
     Indication: CONSTIPATION
     Dosage: UNK
     Route: 065
     Dates: start: 20111118, end: 20111120
  2. ERLOTINIB HYDROCHLORIDE [Suspect]
     Indication: NON-SMALL CELL LUNG CANCER
     Dosage: 150 MG, CYCLIC
     Route: 048
     Dates: start: 20110911
  3. EPOGEN [Concomitant]
     Indication: ANAEMIA
     Dosage: 4000 IU, TWICE WEEKLY
     Route: 058
     Dates: start: 20111001, end: 20111120
  4. NIFEDIPINE [Concomitant]
     Indication: RENAL FAILURE ACUTE
     Dosage: UNK
     Route: 048
     Dates: start: 20110901, end: 20111120

REACTIONS (5)
  - COUGH [None]
  - DEATH [None]
  - DELIRIUM [None]
  - DISORIENTATION [None]
  - DYSPNOEA [None]
